FAERS Safety Report 23724123 (Version 1)
Quarter: 2024Q2

REPORT INFORMATION
  Report Type: Spontaneous
  Country: US (occurrence: US)
  Receive Date: 20240409
  Receipt Date: 20240409
  Transmission Date: 20240715
  Serious: No
  Sender: FDA-Public Use
  Company Number: US-INCYTE CORPORATION-2024IN002829

PATIENT

DRUGS (1)
  1. OPZELURA [Suspect]
     Active Substance: RUXOLITINIB PHOSPHATE
     Dosage: 1.5% CREAM 60GM, BID (APPLY A THIN LAYER TO ITCHY/RED SPOTS ON NECK \T\ FACE TWICE DAILY AS DIRECTED
     Route: 061

REACTIONS (1)
  - Headache [Unknown]

NARRATIVE: CASE EVENT DATE: 20240313
